FAERS Safety Report 9524368 (Version 1)
Quarter: 2013Q3

REPORT INFORMATION
  Report Type: Spontaneous
  Country: US (occurrence: None)
  Receive Date: 20130912
  Receipt Date: 20130912
  Transmission Date: 20140515
  Serious: Yes (Other)
  Sender: FDA-Public Use
  Company Number: None

PATIENT
  Age: 50 Year
  Sex: Female
  Weight: 95.26 kg

DRUGS (6)
  1. ALEVE LIQUID GELS [Suspect]
     Indication: BACK PAIN
     Dosage: 1 TABLET TWICE ON DAY 1 TWICE ON DAY 2
     Route: 048
     Dates: start: 20130903, end: 20130904
  2. PROMETHAZINE [Concomitant]
  3. HYOSCYAMINE [Concomitant]
  4. LASIX [Concomitant]
  5. PRILOSEC [Concomitant]
  6. CENTRUM SILVER VITAMINS [Concomitant]

REACTIONS (5)
  - Dyspnoea [None]
  - Local swelling [None]
  - Local swelling [None]
  - Hypoaesthesia oral [None]
  - Hypoaesthesia [None]
